FAERS Safety Report 12148127 (Version 1)
Quarter: 2016Q1

REPORT INFORMATION
  Report Type: Report from Study
  Country: CA (occurrence: CA)
  Receive Date: 20160304
  Receipt Date: 20160304
  Transmission Date: 20160526
  Serious: Yes (Hospitalization)
  Sender: FDA-Public Use
  Company Number: CA-ABBVIE-16K-028-1548417-00

PATIENT
  Sex: Female
  Weight: 62.2 kg

DRUGS (1)
  1. HUMIRA [Suspect]
     Active Substance: ADALIMUMAB
     Indication: CROHN^S DISEASE
     Route: 058
     Dates: start: 20150211

REACTIONS (4)
  - Thrombosis [Recovering/Resolving]
  - Acute kidney injury [Recovering/Resolving]
  - Dehydration [Recovering/Resolving]
  - Gastrointestinal stoma output increased [Recovering/Resolving]
